FAERS Safety Report 25959150 (Version 1)
Quarter: 2025Q4

REPORT INFORMATION
  Report Type: Spontaneous
  Country: CA (occurrence: CA)
  Receive Date: 20251025
  Receipt Date: 20251025
  Transmission Date: 20260118
  Serious: Yes (Other)
  Sender: TEVA
  Company Number: CA-TEVA-VS-3384277

PATIENT

DRUGS (1)
  1. OLANZAPINE [Suspect]
     Active Substance: OLANZAPINE
     Indication: Product used for unknown indication
     Dosage: DOSE FORM : NOT SPECIFIED
     Route: 065

REACTIONS (8)
  - Diabetes mellitus [Unknown]
  - Blood prolactin increased [Unknown]
  - Constipation [Unknown]
  - Dehydration [Unknown]
  - Weight increased [Unknown]
  - Cortisol increased [Unknown]
  - Feeling abnormal [Unknown]
  - Blood glucose increased [Unknown]
